FAERS Safety Report 8574635-9 (Version None)
Quarter: 2012Q3

REPORT INFORMATION
  Report Type: 
  Country: None (occurrence: None)
  Receive Date: 20120807
  Receipt Date: 20120724
  Transmission Date: 20120928
  Serious: Yes (Hospitalization)
  Sender: FDA-Public Use
  Company Number: AT-RANBAXY-2012R1-58671

PATIENT
  Age: 23 Year
  Sex: Female

DRUGS (3)
  1. RISPERIDONE [Suspect]
     Indication: PRODUCT USED FOR UNKNOWN INDICATION
     Dosage: 2 MG BID
     Route: 065
     Dates: start: 20090301
  2. RISPERIDONE [Suspect]
     Dosage: 6MG
     Route: 065
     Dates: start: 20080101
  3. RISPERIDONE [Suspect]
     Dosage: 4MG
     Route: 065

REACTIONS (1)
  - PLEUROTHOTONUS [None]
